FAERS Safety Report 12404313 (Version 1)
Quarter: 2016Q2

REPORT INFORMATION
  Report Type: Spontaneous
  Country: US (occurrence: US)
  Receive Date: 20160525
  Receipt Date: 20160525
  Transmission Date: 20160815
  Serious: No
  Sender: FDA-Public Use
  Company Number: US-TARO-2016TAR00054

PATIENT
  Age: 22 Month
  Sex: Male
  Weight: 15.42 kg

DRUGS (1)
  1. FEVERALL [Suspect]
     Active Substance: ACETAMINOPHEN
     Indication: PYREXIA
     Dosage: 160 MG, UNK
     Route: 054
     Dates: start: 20160114

REACTIONS (2)
  - Prescribed overdose [Unknown]
  - Drug ineffective [Recovered/Resolved]

NARRATIVE: CASE EVENT DATE: 20160114
